FAERS Safety Report 15183397 (Version 1)
Quarter: 2018Q3

REPORT INFORMATION
  Report Type: Spontaneous
  Country: FI (occurrence: FI)
  Receive Date: 20180723
  Receipt Date: 20180723
  Transmission Date: 20181010
  Serious: Yes (Life-Threatening, Other)
  Sender: FDA-Public Use
  Company Number: FI-PFIZER INC-2018286013

PATIENT
  Age: 50 Year
  Sex: Male

DRUGS (8)
  1. GRANISETRON [Concomitant]
     Active Substance: GRANISETRON
     Indication: PROPHYLAXIS OF NAUSEA AND VOMITING
     Dosage: UNK
  2. GEMCITABINE HYDROCHLORIDE. [Interacting]
     Active Substance: GEMCITABINE HYDROCHLORIDE
     Dosage: UNK, CYCLIC (FIRST CYCLE)
     Route: 042
  3. INTERFERON ALFA NOS [Interacting]
     Active Substance: INTERFERON ALFA-2A OR INTERFERON ALFA-2B
     Dosage: 10000000 IU, UNK (THREE TIMES A WEEK)
     Route: 058
  4. GEMCITABINE HYDROCHLORIDE. [Suspect]
     Active Substance: GEMCITABINE HYDROCHLORIDE
     Indication: METASTATIC RENAL CELL CARCINOMA
     Dosage: 1000 MG/M2, CYCLIC (IN 30 MINUTES ON DAY 1 AND 8 IN THREE?WEEK CYCLES)
     Route: 042
  5. VINBLASTINE [Concomitant]
     Active Substance: VINBLASTINE
     Indication: METASTATIC RENAL CELL CARCINOMA
     Dosage: UNK, CYCLIC (EIGHT CYCLES)
  6. GEMCITABINE HYDROCHLORIDE. [Interacting]
     Active Substance: GEMCITABINE HYDROCHLORIDE
     Dosage: UNK, CYCLIC (SECOND CYCLE, INFUSION)
     Route: 042
  7. DEXAMETHASONE. [Concomitant]
     Active Substance: DEXAMETHASONE
     Indication: PROPHYLAXIS OF NAUSEA AND VOMITING
     Dosage: UNK
  8. INTERFERON ALFA NOS [Interacting]
     Active Substance: INTERFERON ALFA-2A OR INTERFERON ALFA-2B
     Indication: METASTATIC RENAL CELL CARCINOMA
     Dosage: UNK, CYCLIC (EIGHT CYCLES)

REACTIONS (2)
  - Drug interaction [Recovering/Resolving]
  - Capillary leak syndrome [Recovering/Resolving]
